FAERS Safety Report 14648466 (Version 3)
Quarter: 2018Q2

REPORT INFORMATION
  Report Type: Spontaneous
  Country: DE (occurrence: DE)
  Receive Date: 20180316
  Receipt Date: 20180518
  Transmission Date: 20180711
  Serious: Yes (Death, Other)
  Sender: FDA-Public Use
  Company Number: DE-PFIZER INC-2018106705

PATIENT
  Sex: Male

DRUGS (3)
  1. LYRICA [Suspect]
     Active Substance: PREGABALIN
     Dosage: UNK
  2. DOLOPHINE [Suspect]
     Active Substance: METHADONE HYDROCHLORIDE
     Dosage: UNK
  3. OXYCODON [Suspect]
     Active Substance: OXYCODONE
     Dosage: UNK

REACTIONS (5)
  - Cardiac arrest [Fatal]
  - Mental impairment [Unknown]
  - Weight increased [Unknown]
  - Drug dependence [Unknown]
  - Abdominal distension [Unknown]
